FAERS Safety Report 8422732-0 (Version None)
Quarter: 2012Q2

REPORT INFORMATION
  Report Type: 
  Country: None (occurrence: None)
  Receive Date: 20120608
  Receipt Date: 20120530
  Transmission Date: 20120825
  Serious: Yes (Disabling, Other)
  Sender: FDA-Public Use
  Company Number: US-BRISTOL-MYERS SQUIBB COMPANY-16646705

PATIENT
  Age: 71 Year
  Sex: Male
  Weight: 107 kg

DRUGS (39)
  1. METOPROLOL TARTRATE [Suspect]
     Indication: HYPERTENSION
     Dates: start: 20090101
  2. FUROSEMIDE [Concomitant]
  3. PLAVIX [Suspect]
  4. ZOCOR [Suspect]
  5. REGLAN [Suspect]
  6. COREG [Suspect]
  7. TRAMADOL HCL [Suspect]
  8. PRAVASTATIN SODIUM [Concomitant]
  9. GLUCOPHAGE [Suspect]
  10. LUVOX [Suspect]
  11. IBUPROFEN (ADVIL) [Suspect]
     Indication: BACK PAIN
     Dates: end: 20110301
  12. MOTRIN [Suspect]
  13. POTASSIUM CHLORIDE [Concomitant]
  14. PILOCARPINE [Concomitant]
     Indication: HYPERTENSION
  15. METFORMIN HCL [Suspect]
     Indication: DIABETES MELLITUS
     Dates: start: 20101018
  16. DIAZEPAM [Concomitant]
  17. LOSARTAN [Concomitant]
     Indication: CARDIAC DISORDER
  18. THERATEARS [Concomitant]
  19. PROSCAR [Suspect]
  20. VIAGRA [Suspect]
  21. LANTUS [Concomitant]
     Indication: DIABETES MELLITUS
     Dosage: 1DF:12UNITS
  22. CLOZAPINE [Concomitant]
  23. ASPIRIN [Concomitant]
     Indication: CARDIAC DISORDER
  24. LUMIGAN [Concomitant]
     Indication: EYE DISORDER
  25. TOPROL-XL [Suspect]
  26. RESTASIS [Suspect]
  27. LOTRIMIN [Suspect]
  28. ISTALOL [Concomitant]
     Dosage: 1DF:1 GITT
  29. FOLIC ACID [Concomitant]
  30. VICODIN [Concomitant]
  31. XALATAN [Suspect]
     Route: 047
  32. PROZAC [Suspect]
  33. LIPITOR [Suspect]
  34. BILBERRY [Concomitant]
  35. DIGOXIN [Concomitant]
  36. OXYCODONE HCL [Concomitant]
  37. ZETIA [Suspect]
  38. FISH OIL [Concomitant]
  39. ALLOPURINOL [Concomitant]

REACTIONS (13)
  - ASTHENIA [None]
  - BACK PAIN [None]
  - VOMITING [None]
  - MYALGIA [None]
  - DYSPNOEA [None]
  - CONSTIPATION [None]
  - INSOMNIA [None]
  - SKIN IRRITATION [None]
  - DRUG HYPERSENSITIVITY [None]
  - NAUSEA [None]
  - BLOOD GLUCOSE INCREASED [None]
  - ABASIA [None]
  - FATIGUE [None]
